FAERS Safety Report 17282704 (Version 1)
Quarter: 2020Q1

REPORT INFORMATION
  Report Type: Spontaneous
  Country: US (occurrence: US)
  Receive Date: 20200117
  Receipt Date: 20200117
  Transmission Date: 20200409
  Serious: Yes (Other)
  Sender: FDA-Public Use
  Company Number: None

PATIENT
  Age: 55 Year
  Sex: Female

DRUGS (4)
  1. LITHIUM CARBONATE. [Suspect]
     Active Substance: LITHIUM CARBONATE
     Indication: AFFECTIVE DISORDER
     Route: 048
     Dates: start: 20191119, end: 20191122
  2. HALOPERIDOL 15 MG TWICE DAILY [Concomitant]
  3. BENZTROPINE 1 MG TWICE DAILY [Concomitant]
  4. LITHIUM CARBONATE. [Suspect]
     Active Substance: LITHIUM CARBONATE
     Indication: AFFECTIVE DISORDER
     Route: 048
     Dates: start: 20190610, end: 20191122

REACTIONS (20)
  - Affect lability [None]
  - Glycosylated haemoglobin increased [None]
  - Irritability [None]
  - Intentional self-injury [None]
  - Low density lipoprotein increased [None]
  - Hypothyroidism [None]
  - Schizoaffective disorder [None]
  - Hypersexuality [None]
  - Blood triglycerides increased [None]
  - Patient uncooperative [None]
  - Blood urea increased [None]
  - Headache [None]
  - Product prescribing issue [None]
  - Anger [None]
  - Thyroxine free decreased [None]
  - Treatment noncompliance [None]
  - Blood creatinine increased [None]
  - Adverse drug reaction [None]
  - Substance abuse [None]
  - Blood thyroid stimulating hormone increased [None]

NARRATIVE: CASE EVENT DATE: 20191121
